FAERS Safety Report 24842644 (Version 1)
Quarter: 2025Q1

REPORT INFORMATION
  Report Type: Spontaneous
  Country: US (occurrence: US)
  Receive Date: 20250115
  Receipt Date: 20250115
  Transmission Date: 20250408
  Serious: Yes (Other)
  Sender: JOHNSON AND JOHNSON
  Company Number: US-JNJFOC-20250110987

PATIENT
  Age: 13 Year
  Sex: Male

DRUGS (5)
  1. RISPERDAL [Suspect]
     Active Substance: RISPERIDONE
     Indication: Aggression
     Route: 048
     Dates: start: 20100129, end: 2013
  2. RISPERDAL [Suspect]
     Active Substance: RISPERIDONE
     Indication: Affective disorder
  3. RISPERDAL [Suspect]
     Active Substance: RISPERIDONE
     Indication: Irritability
  4. RISPERDAL [Suspect]
     Active Substance: RISPERIDONE
     Indication: Anger
  5. RISPERIDONE [Suspect]
     Active Substance: RISPERIDONE
     Indication: Product used for unknown indication
     Route: 065

REACTIONS (1)
  - Overweight [Recovering/Resolving]

NARRATIVE: CASE EVENT DATE: 20100301
